FAERS Safety Report 19158154 (Version 1)
Quarter: 2021Q2

REPORT INFORMATION
  Report Type: Spontaneous
  Country: DE (occurrence: DE)
  Receive Date: 20210420
  Receipt Date: 20210420
  Transmission Date: 20210717
  Serious: Yes (Other)
  Sender: FDA-Public Use
  Company Number: DE-PFIZER INC-2021405770

PATIENT
  Age: 75 Year
  Sex: Male

DRUGS (39)
  1. GEMCITABINE HYDROCHLORIDE. [Suspect]
     Active Substance: GEMCITABINE HYDROCHLORIDE
     Dosage: 1000 MG/M2 (DAY 1 FOR CYCLE 2)
  2. GEMCITABINE HYDROCHLORIDE. [Suspect]
     Active Substance: GEMCITABINE HYDROCHLORIDE
     Dosage: 1000 MG/M2 (DAY 15 FOR CYCLE 2)
  3. GEMCITABINE HYDROCHLORIDE. [Suspect]
     Active Substance: GEMCITABINE HYDROCHLORIDE
     Dosage: 800 MG/M2 (DAY 15 FOR CYCLE 7)
  4. NAB?PACLITAXEL [Suspect]
     Active Substance: PACLITAXEL
     Dosage: 100 MG/M2 (DAY 8 FOR CYCLE 3)
  5. NAB?PACLITAXEL [Suspect]
     Active Substance: PACLITAXEL
     Dosage: 125 MG/M2 (DAY 1 FOR CYCLE 4)
  6. NAB?PACLITAXEL [Suspect]
     Active Substance: PACLITAXEL
     Dosage: 125 MG/M2 (DAY 15 FOR CYCLE 4)
  7. NAB?PACLITAXEL [Suspect]
     Active Substance: PACLITAXEL
     Dosage: 125 MG/M2 (DAY 1 FOR CYCLE 6)
  8. GEMCITABINE HYDROCHLORIDE. [Suspect]
     Active Substance: GEMCITABINE HYDROCHLORIDE
     Dosage: 1000 MG/M2 (DAY 1 FOR CYCLE 3)
  9. GEMCITABINE HYDROCHLORIDE. [Suspect]
     Active Substance: GEMCITABINE HYDROCHLORIDE
     Dosage: 1000 MG/M2 (DAY 1 FOR CYCLE 7)
  10. NAB?PACLITAXEL [Suspect]
     Active Substance: PACLITAXEL
     Indication: ADENOCARCINOMA PANCREAS
     Dosage: 100 MG/M2 (DAY 1 FOR CYCLE 1)
  11. NAB?PACLITAXEL [Suspect]
     Active Substance: PACLITAXEL
     Dosage: 100 MG/M2 (DAY 15 FOR CYCLE 6)
  12. GEMCITABINE HYDROCHLORIDE. [Suspect]
     Active Substance: GEMCITABINE HYDROCHLORIDE
     Dosage: 1000 MG/M2 (DAY 15 FOR CYCLE 1)
  13. GEMCITABINE HYDROCHLORIDE. [Suspect]
     Active Substance: GEMCITABINE HYDROCHLORIDE
     Dosage: 800 MG/M2 (DAY 8 FOR CYCLE 4)
  14. NAB?PACLITAXEL [Suspect]
     Active Substance: PACLITAXEL
     Dosage: 125 MG/M2 (DAY 1 FOR CYCLE 5)
  15. NAB?PACLITAXEL [Suspect]
     Active Substance: PACLITAXEL
     Dosage: 100 MG/M2 (DAY 15 FOR CYCLE 7)
  16. GEMCITABINE HYDROCHLORIDE. [Suspect]
     Active Substance: GEMCITABINE HYDROCHLORIDE
     Dosage: 1000 MG/M2 (DAY 8 FOR CYCLE 1)
  17. GEMCITABINE HYDROCHLORIDE. [Suspect]
     Active Substance: GEMCITABINE HYDROCHLORIDE
     Dosage: 1000 MG/M2 (DAY 1 FOR CYCLE 4)
  18. NAB?PACLITAXEL [Suspect]
     Active Substance: PACLITAXEL
     Dosage: 125 MG/M2 (DAY 8 FOR CYCLE 2)
  19. NAB?PACLITAXEL [Suspect]
     Active Substance: PACLITAXEL
     Dosage: 125 MG/M2 (DAY 1 FOR CYCLE 3)
  20. NAB?PACLITAXEL [Suspect]
     Active Substance: PACLITAXEL
     Dosage: 100 MG/M2 (DAY 8 FOR CYCLE 4)
  21. GEMCITABINE HYDROCHLORIDE. [Suspect]
     Active Substance: GEMCITABINE HYDROCHLORIDE
     Dosage: 1000 MG/M2 (DAY 8 FOR CYCLE 5)
  22. NAB?PACLITAXEL [Suspect]
     Active Substance: PACLITAXEL
     Dosage: 125 MG/M2 (DAY 15 FOR CYCLE 1)
  23. NAB?PACLITAXEL [Suspect]
     Active Substance: PACLITAXEL
     Dosage: 125 MG/M2 (DAY 8 FOR CYCLE 5)
  24. NAB?PACLITAXEL [Suspect]
     Active Substance: PACLITAXEL
     Dosage: 125 MG/M2 (DAY 1 FOR CYCLE 7)
  25. GEMCITABINE HYDROCHLORIDE. [Suspect]
     Active Substance: GEMCITABINE HYDROCHLORIDE
     Indication: ADENOCARCINOMA PANCREAS
     Dosage: 1000 MG/M2 (DAY 1 FOR CYCLE 1)
  26. GEMCITABINE HYDROCHLORIDE. [Suspect]
     Active Substance: GEMCITABINE HYDROCHLORIDE
     Dosage: 1000 MG/M2 (DAY 1 FOR CYCLE 5)
  27. GEMCITABINE HYDROCHLORIDE. [Suspect]
     Active Substance: GEMCITABINE HYDROCHLORIDE
     Dosage: 1000 MG/M2 (DAY 1 FOR CYCLE 6)
  28. GEMCITABINE HYDROCHLORIDE. [Suspect]
     Active Substance: GEMCITABINE HYDROCHLORIDE
     Dosage: 800 MG/M2 (DAY 15 FOR CYCLE 6)
  29. NAB?PACLITAXEL [Suspect]
     Active Substance: PACLITAXEL
     Dosage: 125 MG/M2 (DAY 1 FOR CYCLE 2)
  30. NAB?PACLITAXEL [Suspect]
     Active Substance: PACLITAXEL
     Dosage: 100 MG/M2 (DAY 15 FOR CYCLE 5)
  31. GEMCITABINE HYDROCHLORIDE. [Suspect]
     Active Substance: GEMCITABINE HYDROCHLORIDE
     Dosage: 1000 MG/M2 (DAY 8 FOR CYCLE 2)
  32. GEMCITABINE HYDROCHLORIDE. [Suspect]
     Active Substance: GEMCITABINE HYDROCHLORIDE
     Dosage: 800 MG/M2 (DAY 8 FOR CYCLE 3)
  33. GEMCITABINE HYDROCHLORIDE. [Suspect]
     Active Substance: GEMCITABINE HYDROCHLORIDE
     Dosage: 1000 MG/M2 (DAY 15 FOR CYCLE 4)
  34. GEMCITABINE HYDROCHLORIDE. [Suspect]
     Active Substance: GEMCITABINE HYDROCHLORIDE
     Dosage: 1000 MG/M2 (DAY 8 FOR CYCLE 6)
  35. GEMCITABINE HYDROCHLORIDE. [Suspect]
     Active Substance: GEMCITABINE HYDROCHLORIDE
     Dosage: 800 MG/M2 (DAY 8 FOR CYCLE 7)
  36. NAB?PACLITAXEL [Suspect]
     Active Substance: PACLITAXEL
     Dosage: 125 MG/M2 (DAY 8 FOR CYCLE 1)
  37. NAB?PACLITAXEL [Suspect]
     Active Substance: PACLITAXEL
     Dosage: 100 MG/M2 (DAY 15 FOR CYCLE 2)
  38. GEMCITABINE HYDROCHLORIDE. [Suspect]
     Active Substance: GEMCITABINE HYDROCHLORIDE
     Dosage: 800 MG/M2 (DAY 15 FOR CYCLE 5)
  39. NAB?PACLITAXEL [Suspect]
     Active Substance: PACLITAXEL
     Dosage: 100 MG/M2 (DAY 8 FOR CYCLE 7)

REACTIONS (8)
  - Thrombocytopenia [Unknown]
  - Cholangitis [Unknown]
  - Neutropenia [Unknown]
  - Neuropathy peripheral [Unknown]
  - Alopecia [Unknown]
  - Pyrexia [Unknown]
  - Polyneuropathy [Unknown]
  - Paronychia [Unknown]
